FAERS Safety Report 16925465 (Version 1)
Quarter: 2019Q4

REPORT INFORMATION
  Report Type: Spontaneous
  Country: GB (occurrence: GB)
  Receive Date: 20191016
  Receipt Date: 20191016
  Transmission Date: 20200122
  Serious: Yes (Hospitalization)
  Sender: FDA-Public Use
  Company Number: GB-MYLANLABS-2019M1097111

PATIENT
  Age: 40 Year
  Sex: Female
  Weight: 105.68 kg

DRUGS (1)
  1. ZONISAMIDE MYLAN [Suspect]
     Active Substance: ZONISAMIDE
     Indication: EPILEPSY
     Dosage: 250 MILLIGRAM, QD
     Route: 048
     Dates: start: 20190511, end: 20190513

REACTIONS (4)
  - Skin discolouration [Not Recovered/Not Resolved]
  - Epilepsy [Recovering/Resolving]
  - Product substitution issue [Unknown]
  - Rash [Not Recovered/Not Resolved]

NARRATIVE: CASE EVENT DATE: 20190513
